FAERS Safety Report 11911240 (Version 2)
Quarter: 2016Q1

REPORT INFORMATION
  Report Type: Spontaneous
  Country: US (occurrence: US)
  Receive Date: 20160112
  Receipt Date: 20160129
  Transmission Date: 20160526
  Serious: No
  Sender: FDA-Public Use
  Company Number: US-PFIZER INC-2015474586

PATIENT
  Age: 63 Year
  Sex: Female

DRUGS (1)
  1. IBRANCE [Suspect]
     Active Substance: PALBOCICLIB
     Indication: BREAST CANCER METASTATIC
     Dosage: 125 MG, UNK
     Dates: start: 20151203

REACTIONS (6)
  - Disease progression [Unknown]
  - Nausea [Unknown]
  - Headache [Unknown]
  - Breast cancer metastatic [Unknown]
  - Diarrhoea [Unknown]
  - Hallucination [Unknown]
